FAERS Safety Report 9970081 (Version 1)
Quarter: 2014Q1

REPORT INFORMATION
  Report Type: Spontaneous
  Country: ES (occurrence: ES)
  Receive Date: 20140306
  Receipt Date: 20140306
  Transmission Date: 20141002
  Serious: Yes (Other)
  Sender: FDA-Public Use
  Company Number: ES-009507513-1402ESP011147

PATIENT
  Age: 64 Year
  Sex: Female

DRUGS (1)
  1. CELESTONE CRONODOSE [Suspect]
     Indication: INVESTIGATION
     Dosage: 1 ML, THERAPEUTIC INDICATION:EXPOSURE TEST (ALLERGY), ADMINISTRATION OF 1 ML INTRAMUSCULAR
     Route: 030
     Dates: start: 20140212, end: 20140212

REACTIONS (7)
  - Toxic skin eruption [Not Recovered/Not Resolved]
  - Feeling hot [Not Recovered/Not Resolved]
  - Butterfly rash [Not Recovered/Not Resolved]
  - Insomnia [Recovered/Resolved]
  - Tremor [Recovered/Resolved]
  - Chills [Recovered/Resolved]
  - Rash [Not Recovered/Not Resolved]
